FAERS Safety Report 6061096-7 (Version None)
Quarter: 2009Q1

REPORT INFORMATION
  Report Type: 
  Country: None (occurrence: None)
  Receive Date: 20090130
  Receipt Date: 20090130
  Transmission Date: 20090719
  Serious: No
  Sender: FDA-Public Use
  Company Number: None

PATIENT
  Sex: Female
  Weight: 84.09 kg

DRUGS (5)
  1. NORTRIPTYLINE HCL [Suspect]
     Dosage: 10MG CAPSULE 30 MG QHS ORAL
     Route: 048
     Dates: start: 20081223, end: 20090129
  2. HYDROCHLOROTHIAZIDE [Concomitant]
  3. MOTRIN [Concomitant]
  4. POTASSIUM CHLORIDE SLOW REL. TAB [Concomitant]
  5. RANITIDINE HCL [Concomitant]

REACTIONS (1)
  - NIGHTMARE [None]
